FAERS Safety Report 9149077 (Version 1)
Quarter: 2013Q1

REPORT INFORMATION
  Report Type: Spontaneous
  Country: SE (occurrence: SE)
  Receive Date: 20130308
  Receipt Date: 20130308
  Transmission Date: 20140127
  Serious: Yes (Hospitalization)
  Sender: FDA-Public Use
  Company Number: SE-PFIZER INC-2013079160

PATIENT
  Age: 33 Year
  Sex: Male

DRUGS (5)
  1. TRAMADOL HCL [Suspect]
     Dosage: 500 MG, SINGLE
     Route: 048
     Dates: start: 20121001, end: 20121001
  2. IPREN [Suspect]
     Dosage: 8 G, SINGLE
     Route: 048
     Dates: start: 20121001, end: 20121001
  3. PARACETAMOL [Suspect]
     Dosage: 9 G, SINGLE
     Route: 048
     Dates: start: 20121001, end: 20121001
  4. THERALENE [Suspect]
     Dosage: 1 G, SINGLE
     Route: 048
     Dates: start: 20121001, end: 20121001
  5. BRUFEN [Suspect]
     Dosage: 4 G, SINGLE
     Route: 048
     Dates: start: 20121001, end: 20121001

REACTIONS (3)
  - Intentional drug misuse [Unknown]
  - Suicide attempt [Recovered/Resolved]
  - Poisoning [Recovered/Resolved]
